FAERS Safety Report 7864281-4 (Version None)
Quarter: 2011Q4

REPORT INFORMATION
  Report Type: 
  Country: None (occurrence: None)
  Receive Date: 20111028
  Receipt Date: 20101119
  Transmission Date: 20120403
  Serious: No
  Sender: FDA-Public Use
  Company Number: US-GLAXOSMITHKLINE-A0894277A

PATIENT
  Age: 92 Year
  Sex: Female

DRUGS (8)
  1. FLOVENT [Concomitant]
  2. IPRATROPIUM BROMIDE [Concomitant]
  3. SINGULAIR [Concomitant]
  4. ALBUTEROL [Concomitant]
  5. BLOOD PRESSURE MEDICATION [Concomitant]
  6. UNKNOWN MEDICATION [Concomitant]
     Indication: GASTRIC DISORDER
  7. OXYGEN [Concomitant]
  8. SEREVENT [Suspect]
     Indication: CHRONIC OBSTRUCTIVE PULMONARY DISEASE
     Dosage: 1PUFF TWICE PER DAY
     Route: 055
     Dates: start: 20080801

REACTIONS (4)
  - DRUG ADMINISTRATION ERROR [None]
  - DRUG INEFFECTIVE [None]
  - PRODUCT QUALITY ISSUE [None]
  - PULMONARY FUNCTION TEST DECREASED [None]
